FAERS Safety Report 9912814 (Version 1)
Quarter: 2014Q1

REPORT INFORMATION
  Report Type: Spontaneous
  Country: KR (occurrence: None)
  Receive Date: 20140212
  Receipt Date: 20140212
  Transmission Date: 20141002
  Serious: Yes (Hospitalization, Other)
  Sender: FDA-Public Use
  Company Number: NSR_01516_2014

PATIENT
  Age: 71 Year
  Sex: Male

DRUGS (1)
  1. BACLOFEN [Suspect]
     Indication: HICCUPS

REACTIONS (9)
  - Mental impairment [None]
  - Haemoglobin decreased [None]
  - White blood cell count increased [None]
  - Blood potassium decreased [None]
  - Blood bilirubin increased [None]
  - Haemodialysis [None]
  - Toxic encephalopathy [None]
  - PO2 decreased [None]
  - Oxygen saturation decreased [None]
